FAERS Safety Report 22358753 (Version 2)
Quarter: 2023Q2

REPORT INFORMATION
  Report Type: Spontaneous
  Country: JP (occurrence: JP)
  Receive Date: 20230524
  Receipt Date: 20230612
  Transmission Date: 20230722
  Serious: Yes (Other)
  Sender: FDA-Public Use
  Company Number: JP-ASTELLAS-2023JP006013

PATIENT
  Sex: Male

DRUGS (1)
  1. VESICARE [Suspect]
     Active Substance: SOLIFENACIN SUCCINATE
     Indication: Hypertonic bladder
     Dosage: UNK UNK, UNKNOWN FREQ.
     Route: 048

REACTIONS (2)
  - COVID-19 [Unknown]
  - Interstitial lung disease [Unknown]

NARRATIVE: CASE EVENT DATE: 20230316
